FAERS Safety Report 6509633-X (Version None)
Quarter: 2009Q4

REPORT INFORMATION
  Report Type: 
  Country: None (occurrence: None)
  Receive Date: 20091222
  Receipt Date: 20091210
  Transmission Date: 20100525
  Serious: Yes (Hospitalization)
  Sender: FDA-Public Use
  Company Number: NL-MEDIMMUNE-MEDI-0009892

PATIENT
  Sex: Female

DRUGS (2)
  1. SYNAGIS [Suspect]
     Route: 030
     Dates: start: 20091016, end: 20091112
  2. SYNAGIS [Suspect]
     Route: 030
     Dates: start: 20091210, end: 20091210

REACTIONS (3)
  - GROWTH RETARDATION [None]
  - PYLORIC STENOSIS [None]
  - VOMITING [None]
